FAERS Safety Report 10227428 (Version 1)
Quarter: 2014Q2

REPORT INFORMATION
  Report Type: Spontaneous
  Country: US (occurrence: US)
  Receive Date: 20140610
  Receipt Date: 20140610
  Transmission Date: 20141212
  Serious: No
  Sender: FDA-Public Use
  Company Number: US-PFIZER INC-2014157397

PATIENT
  Age: 87 Year
  Sex: Male
  Weight: 89.34 kg

DRUGS (5)
  1. TOVIAZ [Suspect]
     Indication: URINARY INCONTINENCE
     Dosage: 4 MG, DAILY
     Dates: start: 201404, end: 20140528
  2. TOVIAZ [Suspect]
     Dosage: 8 MG, DAILY
     Dates: start: 20140529
  3. PREDNISONE [Concomitant]
     Indication: SINUSITIS
     Dosage: UNK
  4. PREDNISONE [Concomitant]
     Indication: LUNG INFECTION
  5. LEUKERAN [Concomitant]
     Indication: LYMPHOMA
     Dosage: UNK

REACTIONS (8)
  - Drug ineffective [Unknown]
  - Pollakiuria [Not Recovered/Not Resolved]
  - Micturition urgency [Not Recovered/Not Resolved]
  - Discomfort [Not Recovered/Not Resolved]
  - Feeling abnormal [Not Recovered/Not Resolved]
  - Penis disorder [Not Recovered/Not Resolved]
  - Malaise [Not Recovered/Not Resolved]
  - Penile pain [Not Recovered/Not Resolved]
